FAERS Safety Report 9849541 (Version 1)
Quarter: 2013Q4

REPORT INFORMATION
  Report Type: Spontaneous
  Country: US (occurrence: None)
  Receive Date: 20131224
  Receipt Date: 20131224
  Transmission Date: 20140711
  Serious: Yes (Hospitalization)
  Sender: FDA-Public Use
  Company Number: PHEH2013US019989

PATIENT
  Age: 51 Year
  Sex: Female
  Weight: 65.3 kg

DRUGS (1)
  1. AFINITOR [Suspect]
     Route: 048
     Dates: start: 20130802, end: 20130817

REACTIONS (1)
  - Platelet count decreased [None]
